FAERS Safety Report 4653167-4 (Version None)
Quarter: 2005Q2

REPORT INFORMATION
  Report Type: 
  Country: None (occurrence: None)
  Receive Date: 20050503
  Receipt Date: 20050223
  Transmission Date: 20051028
  Serious: Yes (Other)
  Sender: FDA-Public Use
  Company Number: 2005036104

PATIENT
  Age: 67 Year
  Sex: Female
  Weight: 72.5755 kg

DRUGS (2)
  1. DETROL [Suspect]
     Indication: POLLAKIURIA
     Dosage: (1 D), ORAL
     Route: 048
     Dates: start: 20010101, end: 20010101
  2. DETROL [Suspect]
     Indication: POLLAKIURIA
     Dosage: 4 MG (4 MG, 1 IN 1 D), ORAL
     Route: 048
     Dates: start: 20050222

REACTIONS (4)
  - DISEASE RECURRENCE [None]
  - KNEE OPERATION [None]
  - NOCTURIA [None]
  - POLLAKIURIA [None]
